FAERS Safety Report 8064304-6 (Version None)
Quarter: 2011Q4

REPORT INFORMATION
  Report Type: 
  Country: None (occurrence: None)
  Receive Date: 20111221
  Receipt Date: 20110415
  Transmission Date: 20120403
  Serious: Yes (Other)
  Sender: FDA-Public Use
  Company Number: PHHY2011US33240

PATIENT
  Age: 52 Year
  Sex: Male

DRUGS (1)
  1. EXJADE [Suspect]
     Indication: THALASSAEMIA
     Dosage: 1500 MG, QD, ORAL
     Route: 048
     Dates: start: 20100901

REACTIONS (2)
  - CHOLELITHIASIS [None]
  - ABDOMINAL PAIN UPPER [None]
